FAERS Safety Report 4302166-0 (Version None)
Quarter: 2004Q1

REPORT INFORMATION
  Report Type: 
  Country: None (occurrence: None)
  Receive Date: 20040220
  Receipt Date: 20040206
  Transmission Date: 20041129
  Serious: Yes (Hospitalization)
  Sender: FDA-Public Use
  Company Number: 2004008916

PATIENT
  Age: 73 Year
  Sex: Male

DRUGS (2)
  1. LITHIUM CARBONATE [Suspect]
     Indication: BIPOLAR I DISORDER
     Dosage: 168 MG (BID)
     Dates: start: 19690101
  2. ROFECOXIB [Suspect]
     Indication: PAIN
     Dosage: 12.5 MG (DAILY)

REACTIONS (10)
  - AORTIC VALVE REPLACEMENT [None]
  - CONFUSIONAL STATE [None]
  - CORONARY ARTERY SURGERY [None]
  - GAIT DISTURBANCE [None]
  - IRRITABILITY [None]
  - OSTEITIS [None]
  - PAIN [None]
  - SOMNOLENCE [None]
  - THERAPEUTIC AGENT TOXICITY [None]
  - TREMOR [None]
